FAERS Safety Report 8086525-9 (Version None)
Quarter: 2012Q1

REPORT INFORMATION
  Report Type: 
  Country: None (occurrence: None)
  Receive Date: 20120128
  Receipt Date: 20110406
  Transmission Date: 20120608
  Serious: No
  Sender: FDA-Public Use
  Company Number: US-ABBOTT-11P-163-0716987-00

PATIENT
  Age: 74 Year
  Sex: Male

DRUGS (10)
  1. COLACE [Concomitant]
     Indication: CONSTIPATION PROPHYLAXIS
  2. ASPIRIN [Concomitant]
     Indication: PRODUCT USED FOR UNKNOWN INDICATION
  3. PREDNISONE TAB [Concomitant]
     Indication: PRODUCT USED FOR UNKNOWN INDICATION
  4. HUMIRA [Suspect]
     Indication: ANKYLOSING SPONDYLITIS
     Dates: start: 20110322
  5. ISTATOL EYE DROPS [Concomitant]
     Indication: GLAUCOMA
     Dosage: ONE DROP IN EACH EYE DAILY
  6. AZILECT [Concomitant]
     Indication: PARKINSON'S DISEASE
  7. ACIDOPHILUS [Concomitant]
     Indication: PRODUCT USED FOR UNKNOWN INDICATION
  8. FOSAMAX [Concomitant]
     Indication: PRODUCT USED FOR UNKNOWN INDICATION
  9. MIRAPEX [Concomitant]
     Indication: PARKINSON'S DISEASE
     Dosage: 0.75/0.375 MG
  10. NEXIUM [Concomitant]
     Indication: GASTROOESOPHAGEAL REFLUX DISEASE

REACTIONS (1)
  - RASH [None]
